FAERS Safety Report 6733983-5 (Version None)
Quarter: 2010Q2

REPORT INFORMATION
  Report Type: 
  Country: None (occurrence: None)
  Receive Date: 20100520
  Receipt Date: 20100514
  Transmission Date: 20101027
  Serious: Yes (Other)
  Sender: FDA-Public Use
  Company Number: JP-BAYER-200913759BYL

PATIENT
  Age: 69 Year
  Sex: Female
  Weight: 51 kg

DRUGS (3)
  1. NEXAVAR [Suspect]
     Indication: HEPATIC NEOPLASM MALIGNANT
     Dosage: UNIT DOSE: 200 MG
     Route: 048
     Dates: start: 20090722, end: 20090811
  2. NEXAVAR [Suspect]
     Dosage: UNIT DOSE: 200 MG
     Route: 048
     Dates: start: 20090812, end: 20090826
  3. FLUOROURACIL [Suspect]
     Indication: CHEMOTHERAPY
     Route: 065

REACTIONS (3)
  - BONE MARROW FAILURE [None]
  - DYSPNOEA [None]
  - HEPATIC FUNCTION ABNORMAL [None]
